FAERS Safety Report 15605892 (Version 1)
Quarter: 2018Q4

REPORT INFORMATION
  Report Type: Spontaneous
  Country: FR (occurrence: FR)
  Receive Date: 20181112
  Receipt Date: 20181112
  Transmission Date: 20190205
  Serious: Yes (Life-Threatening, Hospitalization)
  Sender: FDA-Public Use
  Company Number: FR-ACCORD-091806

PATIENT
  Age: 70 Year
  Sex: Female
  Weight: 58.5 kg

DRUGS (8)
  1. ATENOLOL/ATENOLOL HYDROCHLORIDE [Concomitant]
  2. METHOTREXATE. [Suspect]
     Active Substance: METHOTREXATE
     Indication: RHEUMATIC DISORDER
     Route: 048
     Dates: start: 20160920, end: 20161005
  3. ZEFFIX [Concomitant]
     Active Substance: LAMIVUDINE
  4. AXELER [Concomitant]
     Active Substance: AMLODIPINE BESYLATE\OLMESARTAN MEDOXOMIL
     Dosage: 20 MG/5 MG FILM-COATED TABLETS
  5. TAHOR [Concomitant]
     Active Substance: ATORVASTATIN CALCIUM
     Dosage: 10 MG, FILM-COATED TABLET
  6. KALEORID LP [Concomitant]
     Active Substance: POTASSIUM CHLORIDE
     Dosage: 600 MG, PROLONGED-RELEASE TABLET
  7. FOLIC ACID. [Concomitant]
     Active Substance: FOLIC ACID
  8. HEPSERA [Concomitant]
     Active Substance: ADEFOVIR DIPIVOXIL

REACTIONS (6)
  - Mucosal inflammation [Recovered/Resolved]
  - Pyrexia [Recovered/Resolved]
  - Dehydration [Recovered/Resolved]
  - Acute kidney injury [Recovered/Resolved]
  - Agranulocytosis [Recovered/Resolved]
  - Thrombocytopenia [Recovered/Resolved]

NARRATIVE: CASE EVENT DATE: 20160920
